FAERS Safety Report 5225761-3 (Version None)
Quarter: 2007Q1

REPORT INFORMATION
  Report Type: 
  Country: None (occurrence: None)
  Receive Date: 20070131
  Receipt Date: 20070131
  Transmission Date: 20070707
  Serious: Yes (Other)
  Sender: FDA-Public Use
  Company Number: None

PATIENT
  Age: 62 Year
  Sex: Male
  Weight: 78.0187 kg

DRUGS (2)
  1. ERBITUX [Suspect]
     Indication: LARYNGEAL CANCER
     Dosage: 800MG OVER TWO HOURS IV DRIP
     Route: 041
     Dates: start: 20061127, end: 20061127
  2. BENADRYL [Concomitant]

REACTIONS (5)
  - CHEST PAIN [None]
  - COLD SWEAT [None]
  - DYSPNOEA [None]
  - FEELING COLD [None]
  - HYPERHIDROSIS [None]
